FAERS Safety Report 9586451 (Version 1)
Quarter: 2013Q4

REPORT INFORMATION
  Report Type: Spontaneous
  Country: US (occurrence: US)
  Receive Date: 20131003
  Receipt Date: 20131003
  Transmission Date: 20140711
  Serious: Yes (Other)
  Sender: FDA-Public Use
  Company Number: US-PFIZER INC-2013280975

PATIENT
  Age: 60 Year
  Sex: Female
  Weight: 81.63 kg

DRUGS (7)
  1. LYRICA [Suspect]
     Indication: BACK PAIN
     Dosage: 100 MG, 3X/DAY
     Dates: start: 2007, end: 200807
  2. LYRICA [Suspect]
     Indication: PERIPHERAL NERVE LESION
  3. METFORMIN [Concomitant]
     Indication: DIABETES MELLITUS
     Dosage: 500 MG, 2X/DAY
  4. METOPROLOL [Concomitant]
     Indication: BLOOD PRESSURE INCREASED
     Dosage: 12.5 MG, 2X/DAY
  5. LISINOPRIL [Concomitant]
     Indication: HEART RATE INCREASED
     Dosage: UNK
  6. CYMBALTA [Concomitant]
     Dosage: 60 MG, 1X/DAY
  7. ASPIRIN [Concomitant]
     Dosage: UNK

REACTIONS (3)
  - Meniscus injury [Unknown]
  - Pain [Not Recovered/Not Resolved]
  - Fall [Unknown]
